FAERS Safety Report 23828150 (Version 2)
Quarter: 2024Q4

REPORT INFORMATION
  Report Type: Report from Study
  Country: TW (occurrence: TW)
  Receive Date: 20240507
  Receipt Date: 20241007
  Transmission Date: 20250115
  Serious: Yes (Other)
  Sender: ABBVIE
  Company Number: TW-ABBVIE-5745129

PATIENT
  Age: 57 Year
  Sex: Male
  Weight: 53 kg

DRUGS (8)
  1. UPADACITINIB [Suspect]
     Active Substance: UPADACITINIB
     Indication: Dermatitis atopic
     Route: 048
     Dates: start: 20231107, end: 20240317
  2. UPADACITINIB [Suspect]
     Active Substance: UPADACITINIB
     Indication: Dermatitis atopic
     Route: 048
     Dates: start: 20240326, end: 20240901
  3. UPADACITINIB [Suspect]
     Active Substance: UPADACITINIB
     Indication: Dermatitis atopic
     Route: 048
     Dates: start: 20240902
  4. NEBIVOLOL [Concomitant]
     Active Substance: NEBIVOLOL
     Indication: Supraventricular tachycardia
     Route: 048
     Dates: start: 2022
  5. XYZAL [Concomitant]
     Active Substance: LEVOCETIRIZINE DIHYDROCHLORIDE
     Indication: Dermatitis atopic
     Route: 048
     Dates: start: 20230417
  6. SINPHARDERM [Concomitant]
     Indication: Dermatitis atopic
     Dosage: 1 APPLICATION, 10 %
     Route: 061
     Dates: start: 20230612
  7. MOMETASONE FUROATE [Concomitant]
     Active Substance: MOMETASONE FUROATE
     Indication: Dermatitis atopic
     Dosage: 1 APPLICATION
     Route: 048
     Dates: start: 20231023
  8. CLOBETASOL [Concomitant]
     Active Substance: CLOBETASOL
     Indication: Dermatitis atopic
     Dosage: 1 APPLICATION
     Route: 061
     Dates: start: 20230417

REACTIONS (1)
  - Cataract [Not Recovered/Not Resolved]

NARRATIVE: CASE EVENT DATE: 20240221
